FAERS Safety Report 18613968 (Version 1)
Quarter: 2020Q4

REPORT INFORMATION
  Report Type: Spontaneous
  Country: US (occurrence: US)
  Receive Date: 20201214
  Receipt Date: 20201214
  Transmission Date: 20210114
  Serious: Yes (Hospitalization, Other)
  Sender: FDA-Public Use
  Company Number: US-PURDUE-USA-2020-0168324

PATIENT
  Sex: Female

DRUGS (1)
  1. OXYCONTIN [Suspect]
     Active Substance: OXYCODONE HYDROCHLORIDE
     Indication: BACK PAIN
     Dosage: UNK
     Route: 048
     Dates: start: 2010

REACTIONS (11)
  - Tooth loss [Unknown]
  - Overdose [Unknown]
  - Cardiac disorder [Unknown]
  - Fall [Unknown]
  - Tooth disorder [Unknown]
  - Drug dependence [Unknown]
  - Developmental delay [Unknown]
  - Learning disability [Unknown]
  - Hallucination [Unknown]
  - Dizziness [Unknown]
  - Drug withdrawal syndrome neonatal [Unknown]
